FAERS Safety Report 10215947 (Version 2)
Quarter: 2014Q3

REPORT INFORMATION
  Report Type: Spontaneous
  Country: SE (occurrence: SE)
  Receive Date: 20140604
  Receipt Date: 20140909
  Transmission Date: 20150326
  Serious: Yes (Other)
  Sender: FDA-Public Use
  Company Number: SE-ROCHE-1411901

PATIENT
  Sex: Female
  Weight: 60 kg

DRUGS (2)
  1. LUCENTIS [Suspect]
     Active Substance: RANIBIZUMAB
     Indication: VENOUS OCCLUSION
     Route: 050
     Dates: start: 20140417
  2. WARAN [Concomitant]
     Active Substance: WARFARIN SODIUM
     Indication: CEREBROVASCULAR ACCIDENT
     Route: 065
     Dates: start: 2007

REACTIONS (4)
  - Fall [Unknown]
  - Prothrombin level abnormal [Recovered/Resolved]
  - Wound [Unknown]
  - Haemorrhage [Unknown]
